FAERS Safety Report 14346956 (Version 3)
Quarter: 2018Q1

REPORT INFORMATION
  Report Type: Report from Study
  Country: BR (occurrence: BR)
  Receive Date: 20180103
  Receipt Date: 20180201
  Transmission Date: 20180509
  Serious: Yes (Other)
  Sender: FDA-Public Use
  Company Number: PHHY2017BR189200

PATIENT
  Sex: Female
  Weight: 60 kg

DRUGS (6)
  1. COSENTYX [Suspect]
     Active Substance: SECUKINUMAB
     Indication: PSORIATIC ARTHROPATHY
     Dosage: 300 MG, QW
     Route: 058
  2. VELIJA [Concomitant]
     Active Substance: DULOXETINE HYDROCHLORIDE
     Indication: DEPRESSION
     Dosage: 1 DF, QD
     Route: 048
  3. COSENTYX [Suspect]
     Active Substance: SECUKINUMAB
     Dosage: 300 MG, QMO
     Route: 058
     Dates: start: 201710
  4. AMATO [Concomitant]
     Active Substance: TOPIRAMATE
     Indication: MIGRAINE
     Dosage: 1 DF, QD
     Route: 048
  5. COSENTYX [Suspect]
     Active Substance: SECUKINUMAB
     Indication: PSORIASIS
     Dosage: 300 MG, QMO
     Route: 058
  6. COSENTYX [Suspect]
     Active Substance: SECUKINUMAB
     Dosage: 2 APPLICATIONS (150 MG), EVERY MONTH
     Route: 058
     Dates: start: 2016

REACTIONS (8)
  - Malaise [Not Recovered/Not Resolved]
  - Nasopharyngitis [Unknown]
  - Immunodeficiency [Not Recovered/Not Resolved]
  - Pyrexia [Not Recovered/Not Resolved]
  - Sinusitis [Recovering/Resolving]
  - Oropharyngeal pain [Unknown]
  - Concomitant disease aggravated [Not Recovered/Not Resolved]
  - Fatigue [Not Recovered/Not Resolved]
